FAERS Safety Report 7932211-2 (Version None)
Quarter: 2011Q4

REPORT INFORMATION
  Report Type: 
  Country: None (occurrence: None)
  Receive Date: 20111121
  Receipt Date: 20111110
  Transmission Date: 20120403
  Serious: Yes (Hospitalization, Other)
  Sender: FDA-Public Use
  Company Number: US-ELI_LILLY_AND_COMPANY-US201111004499

PATIENT
  Sex: Female

DRUGS (9)
  1. HYDRALAZINE HCL [Concomitant]
     Dosage: UNK
  2. VOLTAREN                                /SCH/ [Concomitant]
     Dosage: UNK
     Dates: end: 20110211
  3. ACTOS [Concomitant]
     Indication: TYPE 2 DIABETES MELLITUS
     Dosage: UNK
     Dates: start: 20101215, end: 20110211
  4. NOVOLOG [Concomitant]
     Indication: TYPE 2 DIABETES MELLITUS
     Dosage: UNK
     Dates: start: 20090518
  5. LANTUS [Concomitant]
     Dosage: 200 U, QD
     Dates: start: 20110211
  6. RANOLAZINE [Concomitant]
     Indication: ANGINA PECTORIS
     Dosage: UNK
     Dates: start: 20110202, end: 20110217
  7. ASPIRIN [Concomitant]
     Dosage: UNK
  8. HUMALOG [Suspect]
     Indication: TYPE 2 DIABETES MELLITUS
     Dosage: UNK
     Dates: start: 20110202, end: 20110217
  9. LANTUS [Concomitant]
     Indication: TYPE 2 DIABETES MELLITUS
     Dosage: 180 U, QD
     Dates: start: 20090601, end: 20110210

REACTIONS (12)
  - ANXIETY [None]
  - SUICIDAL IDEATION [None]
  - NON-CARDIAC CHEST PAIN [None]
  - HYPERGLYCAEMIA [None]
  - IRRITABLE BOWEL SYNDROME [None]
  - BACK PAIN [None]
  - RENAL FAILURE [None]
  - ABDOMINAL PAIN [None]
  - ASTHMA [None]
  - GASTRITIS [None]
  - DYSPNOEA [None]
  - DEPRESSION [None]
